FAERS Safety Report 5312512-7 (Version None)
Quarter: 2007Q2

REPORT INFORMATION
  Report Type: 
  Country: None (occurrence: None)
  Receive Date: 20070430
  Receipt Date: 20061127
  Transmission Date: 20071010
  Serious: No
  Sender: FDA-Public Use
  Company Number: 2006UW26229

PATIENT
  Age: 63 Year
  Sex: Male
  Weight: 136.1 kg

DRUGS (1)
  1. NEXIUM [Suspect]
     Indication: ABDOMINAL PAIN UPPER
     Route: 048
     Dates: start: 20061116

REACTIONS (1)
  - BLOOD GLUCOSE INCREASED [None]
